FAERS Safety Report 11680363 (Version 1)
Quarter: 2015Q4

REPORT INFORMATION
  Report Type: Spontaneous
  Country: IN (occurrence: IN)
  Receive Date: 20151029
  Receipt Date: 20151029
  Transmission Date: 20160304
  Serious: Yes (Other)
  Sender: FDA-Public Use
  Company Number: IN-ROCHE-1652171

PATIENT
  Age: 73 Year
  Sex: Male

DRUGS (10)
  1. RISTOVA [Suspect]
     Active Substance: RITUXIMAB
     Dosage: SECOND CYCLE
     Route: 065
     Dates: start: 20151003
  2. PREDNISONE. [Concomitant]
     Active Substance: PREDNISONE
     Indication: DIFFUSE LARGE B-CELL LYMPHOMA
     Dosage: FIRST CYCLE
     Route: 065
     Dates: start: 20150912
  3. CYCLOPHOSPHAMIDE. [Concomitant]
     Active Substance: CYCLOPHOSPHAMIDE
     Indication: DIFFUSE LARGE B-CELL LYMPHOMA
     Dosage: FIRST CYCLE
     Route: 065
     Dates: start: 20150912
  4. PREDNISONE. [Concomitant]
     Active Substance: PREDNISONE
     Dosage: SECOND CYCLE
     Route: 065
     Dates: start: 20151003
  5. ONCOVIN [Concomitant]
     Active Substance: VINCRISTINE SULFATE
     Dosage: SECOND CYCLE
     Route: 065
     Dates: start: 20151003
  6. CYCLOPHOSPHAMIDE. [Concomitant]
     Active Substance: CYCLOPHOSPHAMIDE
     Dosage: SECOND CYCLE
     Route: 065
     Dates: start: 20151003
  7. HYDROXYDAUNORUBICIN [Concomitant]
     Active Substance: DOXORUBICIN
     Dosage: SECOND CYCLE
     Route: 065
     Dates: start: 20151003
  8. RISTOVA [Suspect]
     Active Substance: RITUXIMAB
     Indication: DIFFUSE LARGE B-CELL LYMPHOMA
     Dosage: FIRST CYCLE
     Route: 065
     Dates: start: 20150912
  9. ONCOVIN [Concomitant]
     Active Substance: VINCRISTINE SULFATE
     Indication: DIFFUSE LARGE B-CELL LYMPHOMA
     Dosage: FIRST CYCLE
     Route: 065
     Dates: start: 20150912
  10. HYDROXYDAUNORUBICIN [Concomitant]
     Active Substance: DOXORUBICIN
     Indication: DIFFUSE LARGE B-CELL LYMPHOMA
     Dosage: FIRST CYCLE
     Route: 065
     Dates: start: 20150912

REACTIONS (1)
  - Seizure [Unknown]

NARRATIVE: CASE EVENT DATE: 20151020
